FAERS Safety Report 9728159 (Version 1)
Quarter: 2013Q4

REPORT INFORMATION
  Report Type: Spontaneous
  Country: JP (occurrence: None)
  Receive Date: 20131202
  Receipt Date: 20131202
  Transmission Date: 20140711
  Serious: Yes (Hospitalization)
  Sender: FDA-Public Use
  Company Number: JP-RRD-13-00042

PATIENT
  Age: 15 Year
  Sex: Female

DRUGS (4)
  1. DACTINOMYCIN [Suspect]
     Indication: ALVEOLAR RHABDOMYOSARCOMA
     Dosage: 0.015 MG/KG, INTRAVENOUS (NOT OTHERWISE SPECIFIED)?
     Route: 042
  2. ETOPOSIDE (ETOPOSIDE) (ETOPOSIDE) [Concomitant]
  3. IFOSFAMIDE (IFOSFAMIDE) (IFOSFAMIDE) [Concomitant]
  4. VINCRISTINE (VINCRISTINE) (VINCRISTINE) [Concomitant]

REACTIONS (6)
  - Rhabdomyolysis [None]
  - Altered state of consciousness [None]
  - Respiratory failure [None]
  - Renal failure acute [None]
  - Hepatic function abnormal [None]
  - Disseminated intravascular coagulation [None]
